FAERS Safety Report 7575160-4 (Version None)
Quarter: 2011Q2

REPORT INFORMATION
  Report Type: 
  Country: None (occurrence: None)
  Receive Date: 20110627
  Receipt Date: 20110526
  Transmission Date: 20111010
  Serious: No
  Sender: FDA-Public Use
  Company Number: US-BAYER-2011-047205

PATIENT
  Age: 74 Year
  Sex: Female
  Weight: 44 kg

DRUGS (4)
  1. ALEVE (CAPLET) [Suspect]
     Indication: BACK PAIN
     Dosage: 1 DF, ONCE
     Route: 048
     Dates: start: 20110525, end: 20110525
  2. FISH OIL [Concomitant]
     Dosage: UNK UNK, QD
     Route: 048
  3. CALCIUM CARBONATE [Concomitant]
     Dosage: UNK UNK, QD
     Route: 048
  4. ANTIHYPERTENSIVES [Concomitant]
     Dosage: UNK UNK, QD
     Route: 048

REACTIONS (1)
  - INSOMNIA [None]
